FAERS Safety Report 10612668 (Version 2)
Quarter: 2015Q1

REPORT INFORMATION
  Report Type: Spontaneous
  Country: DE (occurrence: DE)
  Receive Date: 20141127
  Receipt Date: 20150123
  Transmission Date: 20150720
  Serious: Yes (Hospitalization, Other)
  Sender: FDA-Public Use
  Company Number: DE-AMGEN-DEUSP2014091626

PATIENT
  Age: 49 Year
  Sex: Female
  Weight: 50 kg

DRUGS (1)
  1. XGEVA [Suspect]
     Active Substance: DENOSUMAB
     Indication: BREAST CANCER METASTATIC
     Dosage: 120 MG, UNK
     Route: 058
     Dates: start: 201407

REACTIONS (10)
  - Atypical pneumonia [Recovered/Resolved]
  - Appetite disorder [Unknown]
  - Somnolence [Unknown]
  - General physical health deterioration [Unknown]
  - Diarrhoea [Unknown]
  - Sepsis [Unknown]
  - Memory impairment [Unknown]
  - Hyponatraemia [Recovered/Resolved]
  - Cystitis [Unknown]
  - Hypernatraemia [Unknown]

NARRATIVE: CASE EVENT DATE: 20140714
